FAERS Safety Report 21157131 (Version 2)
Quarter: 2025Q2

REPORT INFORMATION
  Report Type: Report from Study
  Country: FR (occurrence: FR)
  Receive Date: 20220801
  Receipt Date: 20250603
  Transmission Date: 20250717
  Serious: Yes (Other)
  Sender: PFIZER
  Company Number: FR-PFIZER INC-202201020349

PATIENT

DRUGS (2)
  1. DOXORUBICIN HYDROCHLORIDE [Suspect]
     Active Substance: DOXORUBICIN HYDROCHLORIDE
     Indication: Leiomyosarcoma
     Dosage: FOR UP TO SIX CYCLES VIA THE CENTRAL VENOUS ROUTE PER SLOW PERFUSION FOR 10-15 MIN
     Route: 042
  2. LENOGRASTIM [Concomitant]
     Active Substance: LENOGRASTIM
     Indication: Leiomyosarcoma
     Dosage: FROM DAY 3 TO DAY 9
     Route: 058

REACTIONS (1)
  - Lung disorder [Unknown]
